FAERS Safety Report 15847011 (Version 3)
Quarter: 2019Q2

REPORT INFORMATION
  Report Type: Report from Study
  Country: JP (occurrence: JP)
  Receive Date: 20190121
  Receipt Date: 20190403
  Transmission Date: 20190711
  Serious: Yes (Death, Other)
  Sender: FDA-Public Use
  Company Number: JP-AMGEN-JPNNI2019007686

PATIENT
  Age: 85 Year
  Sex: Female
  Weight: 56.2 kg

DRUGS (4)
  1. ETELCALCETIDE [Suspect]
     Active Substance: ETELCALCETIDE
     Dosage: 5 MILLIGRAM, QWK
     Route: 010
     Dates: start: 20180301, end: 20181002
  2. ETELCALCETIDE [Suspect]
     Active Substance: ETELCALCETIDE
     Indication: HYPERPARATHYROIDISM SECONDARY
     Dosage: 5 MG, 3 TIMES/WK
     Route: 010
     Dates: start: 20171024, end: 20180228
  3. CALTAN [Concomitant]
     Active Substance: CALCIUM CARBONATE
     Indication: HYPERPHOSPHATAEMIA
     Dosage: 1500 MILLIGRAM
     Route: 048
     Dates: end: 20171117
  4. OXAROL [Concomitant]
     Active Substance: MAXACALCITOL
     Dosage: 5 MICROGRAM
     Dates: end: 20180512

REACTIONS (2)
  - Sepsis [Fatal]
  - Bacterial translocation [Fatal]

NARRATIVE: CASE EVENT DATE: 20180806
